FAERS Safety Report 21120917 (Version 1)
Quarter: 2022Q3

REPORT INFORMATION
  Report Type: Report from Study
  Country: ES (occurrence: ES)
  Receive Date: 20220722
  Receipt Date: 20220722
  Transmission Date: 20221027
  Serious: Yes (Other)
  Sender: FDA-Public Use
  Company Number: ES-TAKEDA-2022TUS048712

PATIENT
  Age: 11 Year
  Sex: Male

DRUGS (9)
  1. TEDUGLUTIDE [Suspect]
     Active Substance: TEDUGLUTIDE
     Indication: Short-bowel syndrome
     Dosage: 1 MILLIGRAM, QD
     Route: 042
     Dates: start: 20180601
  2. TEDUGLUTIDE [Suspect]
     Active Substance: TEDUGLUTIDE
     Indication: Short-bowel syndrome
     Dosage: 1 MILLIGRAM, QD
     Route: 042
     Dates: start: 20180601
  3. TEDUGLUTIDE [Suspect]
     Active Substance: TEDUGLUTIDE
     Indication: Short-bowel syndrome
     Dosage: 1 MILLIGRAM, QD
     Route: 042
     Dates: start: 20180601
  4. TEDUGLUTIDE [Suspect]
     Active Substance: TEDUGLUTIDE
     Indication: Short-bowel syndrome
     Dosage: 1 MILLIGRAM, QD
     Route: 042
     Dates: start: 20180601
  5. URSODIOL [Concomitant]
     Active Substance: URSODIOL
     Indication: Transaminases increased
     Dosage: 225 MILLIGRAM, BID
     Route: 048
     Dates: start: 20220216
  6. RETINOL\TOCOPHEROL [Concomitant]
     Active Substance: RETINOL\TOCOPHEROL
     Indication: Vitamin A deficiency
     Dosage: 2 DOSAGE FORM, QD
     Route: 048
     Dates: start: 20210830, end: 20220209
  7. RETINOL\TOCOPHEROL [Concomitant]
     Active Substance: RETINOL\TOCOPHEROL
     Indication: Vitamin E deficiency
  8. ADIAVAL [Concomitant]
     Indication: Vitamin D deficiency
     Dosage: 1000 MILLIGRAM, BID
     Route: 048
     Dates: start: 20220119
  9. ERGOCALCIFEROL [Concomitant]
     Active Substance: ERGOCALCIFEROL
     Indication: Hypocalcaemia
     Dosage: 400 INTERNATIONAL UNIT, QD
     Route: 048
     Dates: start: 20210621, end: 20220209

REACTIONS (2)
  - Hepatic fibrosis [Not Recovered/Not Resolved]
  - Transaminases increased [Not Recovered/Not Resolved]

NARRATIVE: CASE EVENT DATE: 20220209
